FAERS Safety Report 25011567 (Version 1)
Quarter: 2025Q1

REPORT INFORMATION
  Report Type: Spontaneous
  Country: US (occurrence: US)
  Receive Date: 20250226
  Receipt Date: 20250226
  Transmission Date: 20250409
  Serious: Yes (Other)
  Sender: COOPERSURGICAL
  Company Number: US-COOPERSURGICAL, INC.-2025CPS001288

PATIENT
  Sex: Female
  Weight: 61.224 kg

DRUGS (4)
  1. PARAGARD T 380A [Suspect]
     Active Substance: COPPER
     Indication: Contraception
     Route: 015
     Dates: start: 20160808, end: 20171110
  2. NORTRIPTYLINE [Concomitant]
     Active Substance: NORTRIPTYLINE
     Dates: start: 2011, end: 2021
  3. KLONOPIN [Concomitant]
     Active Substance: CLONAZEPAM
     Dates: start: 201212, end: 202008
  4. ^TELEXA^ [Concomitant]
     Dates: start: 2011, end: 2021

REACTIONS (12)
  - Reproductive complication associated with device [Not Recovered/Not Resolved]
  - Laparotomy [Recovered/Resolved]
  - Uterine disorder [Not Recovered/Not Resolved]
  - Device breakage [Recovered/Resolved]
  - Foreign body in reproductive tract [Recovered/Resolved]
  - Complication of device removal [Recovered/Resolved]
  - Embedded device [Recovered/Resolved]
  - Endometriosis [Not Recovered/Not Resolved]
  - Adenomyosis [Not Recovered/Not Resolved]
  - Uterine scar [Unknown]
  - Pain [Recovered/Resolved]
  - Abnormal uterine bleeding [Unknown]

NARRATIVE: CASE EVENT DATE: 20170101
